FAERS Safety Report 12240858 (Version 1)
Quarter: 2016Q2

REPORT INFORMATION
  Report Type: Spontaneous
  Country: US (occurrence: US)
  Receive Date: 20160406
  Receipt Date: 20160406
  Transmission Date: 20160815
  Serious: No
  Sender: FDA-Public Use
  Company Number: US-ASTRAZENECA-2016SE26760

PATIENT
  Sex: Female
  Weight: 62.6 kg

DRUGS (2)
  1. VENTOLIN HFA [Concomitant]
     Active Substance: ALBUTEROL SULFATE
     Indication: DYSPNOEA
     Dosage: AS REQUIRED 1 INHALATION, DAILY
     Route: 055
  2. PULMICORT FLEXHALER [Suspect]
     Active Substance: BUDESONIDE
     Indication: PULMONARY OEDEMA
     Route: 055

REACTIONS (6)
  - Drug ineffective [Unknown]
  - Pneumonia [Recovering/Resolving]
  - Product use issue [Unknown]
  - Off label use [Unknown]
  - Bronchitis [Recovering/Resolving]
  - Feeling jittery [Unknown]
